FAERS Safety Report 21579241 (Version 1)
Quarter: 2022Q4

REPORT INFORMATION
  Report Type: Spontaneous
  Country: US (occurrence: None)
  Receive Date: 20221110
  Receipt Date: 20221110
  Transmission Date: 20230113
  Serious: Yes (Hospitalization)
  Sender: FDA-Public Use
  Company Number: None

PATIENT
  Age: 86 Year
  Sex: Male
  Weight: 87.09 kg

DRUGS (1)
  1. PEMBROLIZUMAB [Suspect]
     Active Substance: PEMBROLIZUMAB
     Indication: Malignant melanoma
     Dosage: OTHER FREQUENCY : PER CYCLE, 21 DAYS;?
     Route: 041
     Dates: start: 20220817, end: 20221109

REACTIONS (2)
  - Lethargy [None]
  - Confusional state [None]

NARRATIVE: CASE EVENT DATE: 20221109
